FAERS Safety Report 14223976 (Version 1)
Quarter: 2017Q4

REPORT INFORMATION
  Report Type: Spontaneous
  Country: US (occurrence: None)
  Receive Date: 20171122
  Receipt Date: 20171122
  Transmission Date: 20180321
  Serious: Yes (Hospitalization)
  Sender: FDA-Public Use
  Company Number: None

PATIENT
  Age: 66 Year
  Sex: Male

DRUGS (2)
  1. ZYTIGA [Suspect]
     Active Substance: ABIRATERONE ACETATE
     Indication: PROSTATE CANCER
     Dosage: 4 TABLETS ONCE DAILY BY MOUTH
     Route: 048
     Dates: start: 20171017
  2. JAKAFI [Concomitant]
     Active Substance: RUXOLITINIB

REACTIONS (2)
  - Splenectomy [None]
  - Platelet count decreased [None]
